FAERS Safety Report 16740991 (Version 1)
Quarter: 2019Q3

REPORT INFORMATION
  Report Type: Spontaneous
  Country: ES (occurrence: ES)
  Receive Date: 20190826
  Receipt Date: 20190826
  Transmission Date: 20191005
  Serious: Yes (Other)
  Sender: FDA-Public Use
  Company Number: ES-GILEAD-2019-0424314

PATIENT
  Age: 61 Year
  Sex: Male

DRUGS (5)
  1. DIDANOSIN [Concomitant]
     Active Substance: DIDANOSINE
  2. STAVUDINA [Concomitant]
  3. VIREAD [Suspect]
     Active Substance: TENOFOVIR DISOPROXIL FUMARATE
     Indication: HIV INFECTION
     Dosage: UNK
     Route: 065
     Dates: start: 2002, end: 2010
  4. ABACAVIR. [Concomitant]
     Active Substance: ABACAVIR
  5. LOPINAVIR + RITONAVIR [Concomitant]
     Active Substance: LOPINAVIR\RITONAVIR

REACTIONS (3)
  - Chronic kidney disease [Recovering/Resolving]
  - Fanconi syndrome acquired [Recovering/Resolving]
  - Pathological fracture [Recovered/Resolved]
